FAERS Safety Report 10414802 (Version 1)
Quarter: 2014Q2

REPORT INFORMATION
  Report Type: Spontaneous
  Country: US (occurrence: None)
  Receive Date: 20140604
  Receipt Date: 20140604
  Transmission Date: 20141212
  Serious: No
  Sender: FDA-Public Use
  Company Number: 163-POMAL-14035554

PATIENT
  Age: 48 Year
  Sex: Female
  Weight: 68 kg

DRUGS (15)
  1. POMALYST (POMALIDOMIDE) (3 MILLIGRAM, CAPSULES) [Suspect]
     Indication: PLASMA CELL MYELOMA
     Dosage: 3 MG, 21 IN 28 D, PO
     Route: 048
     Dates: start: 20140228
  2. ADVIL (IBUPROFEN) [Concomitant]
  3. COLACE (DOCUSATE SODIUM) [Concomitant]
  4. DEXAMETHASONE [Concomitant]
  5. FENTANYL [Concomitant]
  6. METHADONE [Concomitant]
  7. MIRALAX (MACROGOL) [Concomitant]
  8. MODAFINAL [Concomitant]
  9. SUDAFED (PSEUDOEPHEDRINE HYDROCHLORIDE) [Concomitant]
  10. TURMERIC [Concomitant]
  11. TYLENOL (PARACETAMOL) [Concomitant]
  12. VALTREX (VALACICLOVIR HYDROCHLORIDE) [Concomitant]
  13. VITAMIN B12 (CYANOCOBALAMIN) [Concomitant]
  14. VITAMIN C (ASCORBIC ACID) [Concomitant]
  15. ASPIRIN (ACETYLSALICYLIC ACID) [Concomitant]

REACTIONS (5)
  - Feeling abnormal [None]
  - Muscle tightness [None]
  - Arthralgia [None]
  - Pain [None]
  - Fatigue [None]
